FAERS Safety Report 24255951 (Version 2)
Quarter: 2024Q3

REPORT INFORMATION
  Report Type: Report from Study
  Country: US (occurrence: US)
  Receive Date: 20240827
  Receipt Date: 20240904
  Transmission Date: 20241017
  Serious: Yes (Hospitalization, Other)
  Sender: ABBVIE
  Company Number: US-ABBVIE-5890926

PATIENT
  Age: 51 Year
  Sex: Female
  Weight: 76 kg

DRUGS (4)
  1. IMBRUVICA [Suspect]
     Active Substance: IBRUTINIB
     Indication: Chronic lymphocytic leukaemia
     Dosage: MISSED DOSES?STRENGTH: 420 MILLIGRAM
     Route: 048
     Dates: start: 202206, end: 202405
  2. IMBRUVICA [Suspect]
     Active Substance: IBRUTINIB
     Indication: Chronic lymphocytic leukaemia
     Dosage: STRENGTH: 420 MILLIGRAM
     Route: 048
     Dates: start: 202405
  3. INSULIN GLARGINE [Concomitant]
     Active Substance: INSULIN GLARGINE
     Indication: Product used for unknown indication
  4. LOSARTAN [Concomitant]
     Active Substance: LOSARTAN\LOSARTAN POTASSIUM
     Indication: Product used for unknown indication

REACTIONS (22)
  - Diabetic retinopathy [Unknown]
  - Visual field defect [Not Recovered/Not Resolved]
  - Poisoning [Recovered/Resolved]
  - Diabetes mellitus [Unknown]
  - Colour blindness [Not Recovered/Not Resolved]
  - Pain [Unknown]
  - Malaise [Recovered/Resolved]
  - Depressed mood [Unknown]
  - Eye haemorrhage [Not Recovered/Not Resolved]
  - Vital functions abnormal [Unknown]
  - Transient ischaemic attack [Recovered/Resolved]
  - Dysstasia [Recovered/Resolved]
  - Eyelid ptosis [Recovered/Resolved]
  - Visual impairment [Not Recovered/Not Resolved]
  - Hemiplegia [Recovered/Resolved]
  - Retinopathy [Unknown]
  - Facial paralysis [Recovered/Resolved]
  - Dyspnoea [Recovered/Resolved]
  - Diabetes mellitus inadequate control [Recovering/Resolving]
  - Stress [Not Recovered/Not Resolved]
  - Gait disturbance [Recovered/Resolved]
  - Chest pain [Not Recovered/Not Resolved]

NARRATIVE: CASE EVENT DATE: 20230701
